FAERS Safety Report 10137230 (Version 1)
Quarter: 2014Q2

REPORT INFORMATION
  Report Type: Spontaneous
  Country: US (occurrence: None)
  Receive Date: 20140428
  Receipt Date: 20140428
  Transmission Date: 20141212
  Serious: Yes (Other)
  Sender: FDA-Public Use
  Company Number: None

PATIENT
  Age: 79 Year
  Sex: Female
  Weight: 59.9 kg

DRUGS (1)
  1. MARCAINE SPINAL 0.75% + 8.25% DEXTROSE [Suspect]
     Indication: ANAESTHESIA
     Dosage: 2 ML ONE TIME EPIDURAL
     Dates: start: 20140421, end: 20140425

REACTIONS (2)
  - Drug ineffective [None]
  - Anaesthetic complication [None]
